FAERS Safety Report 18519667 (Version 1)
Quarter: 2020Q4

REPORT INFORMATION
  Report Type: Spontaneous
  Country: US (occurrence: US)
  Receive Date: 20201118
  Receipt Date: 20201118
  Transmission Date: 20210114
  Serious: Yes (Hospitalization, Other)
  Sender: FDA-Public Use
  Company Number: US-SA-2020SA320462

PATIENT

DRUGS (9)
  1. PACLITAXEL. [Suspect]
     Active Substance: PACLITAXEL
     Indication: TRANSITIONAL CELL CARCINOMA
     Dosage: UNK
     Route: 042
  2. METHOTREXATE. [Concomitant]
     Active Substance: METHOTREXATE
  3. ENFORTUMAB VEDOTIN [Suspect]
     Active Substance: ENFORTUMAB VEDOTIN
     Indication: TRANSITIONAL CELL CARCINOMA
     Dosage: UNK
     Route: 042
  4. DOCETAXEL. [Suspect]
     Active Substance: DOCETAXEL
     Indication: TRANSITIONAL CELL CARCINOMA
     Dosage: UNK
     Route: 042
  5. VINFLUNINE [Suspect]
     Active Substance: VINFLUNINE
     Indication: TRANSITIONAL CELL CARCINOMA
     Dosage: UNK
     Route: 042
  6. VINBLASTINE SULFATE. [Concomitant]
     Active Substance: VINBLASTINE SULFATE
  7. ADRIAMYCIN [Concomitant]
     Active Substance: DOXORUBICIN HYDROCHLORIDE
  8. CISPLATIN. [Concomitant]
     Active Substance: CISPLATIN
  9. PEMBROLIZUMAB. [Concomitant]
     Active Substance: PEMBROLIZUMAB

REACTIONS (2)
  - Fistula of small intestine [Recovered/Resolved]
  - Gastric cancer [Recovered/Resolved]

NARRATIVE: CASE EVENT DATE: 20190719
